FAERS Safety Report 21055922 (Version 1)
Quarter: 2022Q3

REPORT INFORMATION
  Report Type: Spontaneous
  Country: US (occurrence: US)
  Receive Date: 20220708
  Receipt Date: 20220708
  Transmission Date: 20221027
  Serious: Yes (Life-Threatening, Hospitalization)
  Sender: FDA-Public Use
  Company Number: US-LUPIN PHARMACEUTICALS INC.-2022-09212

PATIENT
  Age: 34 Year
  Sex: Female

DRUGS (11)
  1. MISOPROSTOL [Suspect]
     Active Substance: MISOPROSTOL
     Indication: Uterine atony
     Dosage: UNK
     Route: 065
  2. METHYLERGONOVINE [Suspect]
     Active Substance: METHYLERGONOVINE
     Indication: Uterine atony
     Dosage: UNK
     Route: 065
  3. OXYTOCIN [Suspect]
     Active Substance: OXYTOCIN
     Indication: Labour induction
     Dosage: UNK
     Route: 065
  4. OXYTOCIN [Suspect]
     Active Substance: OXYTOCIN
     Indication: Uterine atony
  5. CARBOPROST TROMETHAMINE [Suspect]
     Active Substance: CARBOPROST TROMETHAMINE
     Indication: Uterine atony
     Dosage: UNK
     Route: 065
  6. TRANEXAMIC ACID [Suspect]
     Active Substance: TRANEXAMIC ACID
     Indication: Uterine atony
     Dosage: UNK
     Route: 065
  7. HUMAN PLASMA [Concomitant]
     Active Substance: HUMAN PLASMA
     Indication: Postpartum haemorrhage
     Dosage: 17 UNITS
     Route: 065
  8. FUROSEMIDE [Concomitant]
     Active Substance: FUROSEMIDE
     Indication: Acute pulmonary oedema
     Dosage: UNK
     Route: 065
  9. LIDOCAINE [Concomitant]
     Active Substance: LIDOCAINE
     Indication: Analgesic therapy
     Dosage: UNK
     Route: 008
  10. EPINEPHRINE [Concomitant]
     Active Substance: EPINEPHRINE
     Indication: Analgesic therapy
     Dosage: INFUSION
     Route: 008
  11. EPINEPHRINE [Concomitant]
     Active Substance: EPINEPHRINE
     Indication: Vasopressive therapy

REACTIONS (3)
  - Drug ineffective [Unknown]
  - Drug ineffective for unapproved indication [Unknown]
  - Off label use [Unknown]
